FAERS Safety Report 23932682 (Version 1)
Quarter: 2024Q2

REPORT INFORMATION
  Report Type: Spontaneous
  Country: US (occurrence: None)
  Receive Date: 20240601
  Receipt Date: 20240601
  Transmission Date: 20240716
  Serious: Yes (Other)
  Sender: FDA-Public Use
  Company Number: None

PATIENT
  Age: 41 Year
  Sex: Male
  Weight: 85.5 kg

DRUGS (1)
  1. GLUTATHIONE [Suspect]
     Active Substance: GLUTATHIONE
     Indication: Antioxidant therapy
     Dosage: OTHER QUANTITY : 2 INJECTION(S)?FREQUENCY : AS NEEDED?
     Route: 030
     Dates: start: 20240521, end: 20240521

REACTIONS (5)
  - Palpitations [None]
  - Vertigo [None]
  - Decreased appetite [None]
  - Dizziness [None]
  - Erythema multiforme [None]

NARRATIVE: CASE EVENT DATE: 20240522
